FAERS Safety Report 8914257 (Version 1)
Quarter: 2012Q4

REPORT INFORMATION
  Report Type: 
  Country: BR (occurrence: BR)
  Receive Date: 20121118
  Receipt Date: 20121118
  Transmission Date: 20130627
  Serious: Yes (Other)
  Sender: FDA-Public Use
  Company Number: BR-AMGEN-BRASP2012073422

PATIENT
  Age: 50 Year
  Sex: Female
  Weight: 70 kg

DRUGS (6)
  1. ENBREL [Suspect]
     Indication: RHEUMATOID ARTHRITIS
     Dosage: 50 mg, once weekly
     Route: 058
     Dates: start: 201109
  2. PREDNISONE [Concomitant]
     Indication: ARTHRITIS
     Dosage: Pharmaceutical compound strength 2 mg
     Dates: start: 2002
  3. NIMESULIDE [Concomitant]
     Indication: ARTHRITIS
     Dosage: pharmaceutical compound, strength 100 mg
     Dates: start: 2002
  4. METHOTREXATE [Concomitant]
     Indication: ARTHRITIS
     Dosage: pharmaceutical compound, strength 12.5 mg
     Dates: start: 2002
  5. RANITIDINE [Concomitant]
     Indication: ARTHRITIS
     Dosage: pharmaceutical compound, strength 15 mg
     Dates: start: 2002
  6. FOLIC ACID [Concomitant]
     Indication: ARTHRITIS
     Dosage: pharmaceutical compound, strength 1 mg
     Dates: start: 2002

REACTIONS (3)
  - Dengue fever [Recovered/Resolved]
  - Pyrexia [Recovered/Resolved]
  - Influenza [Recovered/Resolved]
